FAERS Safety Report 24085032 (Version 1)
Quarter: 2024Q3

REPORT INFORMATION
  Report Type: Report from Study
  Country: CA (occurrence: CA)
  Receive Date: 20240712
  Receipt Date: 20240712
  Transmission Date: 20241017
  Serious: No
  Sender: PIERRE FABRE MEDICAMENT
  Company Number: CA-PFM-2021-10554

PATIENT
  Age: 50 Year
  Sex: Female

DRUGS (16)
  1. PROPRANOLOL HYDROCHLORIDE [Suspect]
     Active Substance: PROPRANOLOL HYDROCHLORIDE
     Indication: Migraine
     Dosage: 20 MG, BID (2/DAY)
     Route: 065
  2. PROPRANOLOL HYDROCHLORIDE [Suspect]
     Active Substance: PROPRANOLOL HYDROCHLORIDE
     Indication: Off label use
     Dosage: UNK
     Route: 065
  3. ACETAMINOPHEN\DIPHENHYDRAMINE\PHENYLPROPANOLAMINE [Suspect]
     Active Substance: ACETAMINOPHEN\DIPHENHYDRAMINE\PHENYLPROPANOLAMINE
     Indication: Product used for unknown indication
     Dosage: UNK
     Route: 065
  4. ATENOLOL [Suspect]
     Active Substance: ATENOLOL
     Indication: Product used for unknown indication
     Dosage: 100 MG, QD (1/DAY)
     Route: 065
  5. ELAVIL [Suspect]
     Active Substance: AMITRIPTYLINE HYDROCHLORIDE
     Indication: Product used for unknown indication
     Dosage: 40 MG, QD (1/DAY)
     Route: 065
  6. ELETRIPTAN [Suspect]
     Active Substance: ELETRIPTAN
     Indication: Product used for unknown indication
     Dosage: 40 MG, UNK
     Route: 065
  7. ESTROGENS\PROGESTERONE [Suspect]
     Active Substance: ESTROGENS\PROGESTERONE
     Indication: Product used for unknown indication
     Dosage: UNK
     Route: 065
  8. GRAVOL [Suspect]
     Active Substance: DIMENHYDRINATE
     Indication: Product used for unknown indication
     Dosage: UNK
     Route: 065
  9. MEFENAMIC ACID [Suspect]
     Active Substance: MEFENAMIC ACID
     Indication: Product used for unknown indication
     Dosage: UNK
     Route: 065
  10. METOCLOPRAMIDE HYDROCHLORIDE [Suspect]
     Active Substance: METOCLOPRAMIDE HYDROCHLORIDE
     Indication: Product used for unknown indication
     Dosage: 10 MG, BID (2/DAY)
     Route: 065
  11. METOPROLOL [Suspect]
     Active Substance: METOPROLOL
     Indication: Product used for unknown indication
     Dosage: 25 MG, BID (2/DAY)
     Route: 065
  12. NAPROXEN [Suspect]
     Active Substance: NAPROXEN
     Indication: Product used for unknown indication
     Dosage: UNK
     Route: 065
  13. TOPIRAMATE [Suspect]
     Active Substance: TOPIRAMATE
     Indication: Product used for unknown indication
     Dosage: 50 MG, BID (2/DAY)
     Route: 065
  14. TYLENOL [Suspect]
     Active Substance: ACETAMINOPHEN
     Indication: Product used for unknown indication
     Dosage: UNK
     Route: 065
  15. VERAPAMIL HYDROCHLORIDE [Suspect]
     Active Substance: VERAPAMIL HYDROCHLORIDE
     Indication: Product used for unknown indication
     Dosage: 160 MG, 3 EYERY 1 DAY
     Route: 065
  16. VERAPAMIL HYDROCHLORIDE [Suspect]
     Active Substance: VERAPAMIL HYDROCHLORIDE
     Dosage: 80 MG, TID (3/DAY)
     Route: 065

REACTIONS (5)
  - Vasospasm [Recovered/Resolved]
  - Nervous system disorder [Recovered/Resolved]
  - Drug ineffective for unapproved indication [Unknown]
  - Product use issue [Unknown]
  - Off label use [Unknown]
